FAERS Safety Report 9927887 (Version 3)
Quarter: 2014Q2

REPORT INFORMATION
  Report Type: Spontaneous
  Country: US (occurrence: US)
  Receive Date: 20140227
  Receipt Date: 20140429
  Transmission Date: 20141212
  Serious: No
  Sender: FDA-Public Use
  Company Number: US-PFIZER INC-2014054041

PATIENT
  Age: 60 Year
  Sex: Female
  Weight: 82.54 kg

DRUGS (5)
  1. ZOLOFT [Suspect]
     Indication: CHEST DISCOMFORT
     Dosage: 25 MG, DAILY
     Route: 048
     Dates: start: 201204
  2. ZOLOFT [Suspect]
     Dosage: 50 MG, UNK
     Route: 048
     Dates: start: 20120426
  3. ZOLOFT [Suspect]
     Dosage: 25 MG, DAILY (NIGHTLY)
     Route: 048
     Dates: start: 20120612
  4. TOPROL [Concomitant]
     Dosage: 25 MG, TWO TIMES A DAY
  5. TOPROL XL [Concomitant]
     Dosage: 25  (1/2 TAB)

REACTIONS (1)
  - Ear pain [Not Recovered/Not Resolved]
